FAERS Safety Report 22254571 (Version 5)
Quarter: 2024Q1

REPORT INFORMATION
  Report Type: Spontaneous
  Country: US (occurrence: US)
  Receive Date: 20230426
  Receipt Date: 20240213
  Transmission Date: 20240410
  Serious: No
  Sender: FDA-Public Use
  Company Number: US-SA-SAC20230425001386

PATIENT
  Age: 59 Year
  Sex: Female

DRUGS (1)
  1. DUPIXENT [Suspect]
     Active Substance: DUPILUMAB
     Indication: Dermatitis atopic
     Dosage: 300 MG, QOW
     Route: 058
     Dates: start: 20230204

REACTIONS (11)
  - Impaired quality of life [Unknown]
  - Sleep disorder due to a general medical condition [Unknown]
  - Asthma [Not Recovered/Not Resolved]
  - Upper respiratory tract infection [Not Recovered/Not Resolved]
  - Dermatitis atopic [Unknown]
  - Rash [Unknown]
  - Pruritus [Unknown]
  - Discomfort [Unknown]
  - Therapeutic product effect decreased [Unknown]
  - Hypersensitivity [Not Recovered/Not Resolved]
  - Drug ineffective [Unknown]

NARRATIVE: CASE EVENT DATE: 20230101
